FAERS Safety Report 12413059 (Version 1)
Quarter: 2016Q2

REPORT INFORMATION
  Report Type: Spontaneous
  Country: GB (occurrence: GB)
  Receive Date: 20160527
  Receipt Date: 20160527
  Transmission Date: 20160815
  Serious: Yes (Disabling, Other)
  Sender: FDA-Public Use
  Company Number: GB-PFIZER INC-3277191

PATIENT
  Age: 39 Year
  Sex: Female
  Weight: 104.7 kg

DRUGS (2)
  1. SERTRALINE [Concomitant]
     Active Substance: SERTRALINE HYDROCHLORIDE
     Dosage: UNK
  2. METHOTREXATE SODIUM. [Suspect]
     Active Substance: METHOTREXATE SODIUM
     Indication: PSORIASIS
     Dosage: 5-10 MG
     Route: 048

REACTIONS (3)
  - Menorrhagia [Recovering/Resolving]
  - Fatigue [Recovering/Resolving]
  - Ovulation pain [Recovering/Resolving]

NARRATIVE: CASE EVENT DATE: 20151119
